FAERS Safety Report 6291757-6 (Version None)
Quarter: 2009Q3

REPORT INFORMATION
  Report Type: 
  Country: None (occurrence: None)
  Receive Date: 20090730
  Receipt Date: 20090728
  Transmission Date: 20100115
  Serious: Yes (Death, Other)
  Sender: FDA-Public Use
  Company Number: US-GILEAD-2009-0023345

PATIENT
  Age: 32 Year
  Sex: Female

DRUGS (3)
  1. TRUVADA [Suspect]
     Indication: HIV INFECTION
     Dates: start: 20080501, end: 20090625
  2. PREZISTA [Concomitant]
     Indication: HIV INFECTION
     Dates: start: 20080501, end: 20090625
  3. NORVIR [Concomitant]
     Indication: HIV INFECTION
     Dates: start: 20080501, end: 20090625

REACTIONS (2)
  - COLLAPSE OF LUNG [None]
  - INTRA-UTERINE DEATH [None]
